FAERS Safety Report 5653219-6 (Version None)
Quarter: 2008Q1

REPORT INFORMATION
  Report Type: 
  Country: None (occurrence: None)
  Receive Date: 20080306
  Receipt Date: 20080225
  Transmission Date: 20080703
  Serious: Yes (Life-Threatening, Hospitalization, Other)
  Sender: FDA-Public Use
  Company Number: US-ELI_LILLY_AND_COMPANY-US_990116302

PATIENT
  Age: 9 Year
  Sex: Male
  Weight: 29.091 kg

DRUGS (2)
  1. ZYPREXA [Suspect]
     Dosage: 100 MG, DAILY (1/D)
     Route: 048
  2. ACETAMINOPHEN [Concomitant]
     Dosage: UNK, UNKNOWN
     Route: 048

REACTIONS (13)
  - AGGRESSION [None]
  - ALANINE AMINOTRANSFERASE INCREASED [None]
  - ASPARTATE AMINOTRANSFERASE INCREASED [None]
  - BLOOD LACTATE DEHYDROGENASE INCREASED [None]
  - COGNITIVE DISORDER [None]
  - DRUG TOXICITY [None]
  - EXTRAPYRAMIDAL DISORDER [None]
  - GASTROINTESTINAL MOTILITY DISORDER [None]
  - HYPOTENSION [None]
  - INTENTIONAL OVERDOSE [None]
  - PLATELET COUNT INCREASED [None]
  - SUICIDE ATTEMPT [None]
  - TACHYCARDIA [None]
